FAERS Safety Report 8242894-8 (Version None)
Quarter: 2012Q1

REPORT INFORMATION
  Report Type: 
  Country: None (occurrence: None)
  Receive Date: 20120329
  Receipt Date: 20120327
  Transmission Date: 20120608
  Serious: Yes (Other)
  Sender: FDA-Public Use
  Company Number: US-PFIZER INC-2012078772

PATIENT
  Sex: Male

DRUGS (1)
  1. LIPITOR [Suspect]
     Indication: CARDIOVASCULAR DISORDER
     Dosage: 10 MG, ONCE A DAY
     Route: 048

REACTIONS (3)
  - HAEMORRHAGE [None]
  - BLINDNESS [None]
  - ATRIAL FIBRILLATION [None]
